FAERS Safety Report 12342198 (Version 1)
Quarter: 2016Q2

REPORT INFORMATION
  Report Type: Spontaneous
  Country: US (occurrence: US)
  Receive Date: 20160506
  Receipt Date: 20160506
  Transmission Date: 20160815
  Serious: No
  Sender: FDA-Public Use
  Company Number: US-ANACOR-2016ANA00126

PATIENT
  Sex: Female

DRUGS (1)
  1. KERYDIN [Suspect]
     Active Substance: TAVABOROLE
     Route: 061

REACTIONS (4)
  - Application site pruritus [Unknown]
  - Application site dryness [Unknown]
  - Scab [Unknown]
  - Hyperkeratosis [Unknown]
